FAERS Safety Report 4343501-7 (Version None)
Quarter: 2004Q2

REPORT INFORMATION
  Report Type: 
  Country: None (occurrence: None)
  Receive Date: 20040421
  Receipt Date: 20040421
  Transmission Date: 20050107
  Serious: Yes (Hospitalization)
  Sender: FDA-Public Use
  Company Number: None

PATIENT
  Sex: Female
  Weight: 83 kg

DRUGS (7)
  1. ARSENIC TRIOXIDE [Suspect]
     Indication: METASTATIC MALIGNANT MELANOMA
     Dosage: 20 MG IV QD X 5 DAYS; 29MG IV BIW - MON, THUR
     Route: 042
     Dates: start: 20040301, end: 20040305
  2. ARSENIC TRIOXIDE [Suspect]
     Indication: METASTATIC MALIGNANT MELANOMA
     Dosage: 20 MG IV QD X 5 DAYS; 29MG IV BIW - MON, THUR
     Route: 042
     Dates: start: 20040308, end: 20040415
  3. . [Concomitant]
  4. ASCORBIC ACID [Suspect]
     Indication: METASTATIC MALIGNANT MELANOMA
     Dosage: 1000 MG IV QD X 5 DAYS; 1000MG IV BIW - MON, THURS
     Route: 042
     Dates: start: 20040301, end: 20040305
  5. ASCORBIC ACID [Suspect]
     Indication: METASTATIC MALIGNANT MELANOMA
     Dosage: 1000 MG IV QD X 5 DAYS; 1000MG IV BIW - MON, THURS
     Route: 042
     Dates: start: 20040308, end: 20040415
  6. .. [Concomitant]
  7. TEMOZOLOMIDE [Concomitant]

REACTIONS (6)
  - CONFUSIONAL STATE [None]
  - CONVULSION [None]
  - LOCALISED OEDEMA [None]
  - MALIGNANT NEOPLASM PROGRESSION [None]
  - NAUSEA [None]
  - SPEECH DISORDER [None]
